FAERS Safety Report 6120079-9 (Version None)
Quarter: 2009Q1

REPORT INFORMATION
  Report Type: 
  Country: None (occurrence: None)
  Receive Date: 20090316
  Receipt Date: 20090312
  Transmission Date: 20090719
  Serious: Yes (Hospitalization, Other)
  Sender: FDA-Public Use
  Company Number: US-ABBOTT-09P-163-0557970-00

PATIENT
  Sex: Female
  Weight: 51.302 kg

DRUGS (4)
  1. HUMIRA [Suspect]
     Indication: CROHN'S DISEASE
     Route: 058
     Dates: start: 20081222
  2. VITAMIN TAB [Concomitant]
     Indication: PREGNANCY
     Route: 048
  3. FERROUS SULFATE TAB [Concomitant]
     Indication: ANAEMIA
     Dosage: DAILY
     Route: 048
  4. PREDNISONE [Concomitant]
     Indication: CROHN'S DISEASE
     Route: 048

REACTIONS (2)
  - ANAEMIA [None]
  - INTESTINAL OBSTRUCTION [None]
